FAERS Safety Report 4549064-5 (Version None)
Quarter: 2004Q4

REPORT INFORMATION
  Report Type: 
  Country: None (occurrence: None)
  Receive Date: 20041227
  Receipt Date: 20041116
  Transmission Date: 20050328
  Serious: No
  Sender: FDA-Public Use
  Company Number: 04P-163-0268182-00

PATIENT
  Age: 59 Year
  Sex: Female
  Weight: 57.1532 kg

DRUGS (11)
  1. HUMIRA [Suspect]
     Indication: RHEUMATOID ARTHRITIS
     Dosage: 40 MG, 1 IN 2 WK, SUBCUTANEOUS
     Route: 058
     Dates: start: 20040617
  2. PREDNISONE [Concomitant]
  3. METHOTREXATE [Concomitant]
  4. FOLIC ACID [Concomitant]
  5. ESTROGEN [Concomitant]
  6. DETROL LA [Concomitant]
  7. OXYCODONE [Concomitant]
  8. OXYCONTIN [Concomitant]
  9. BUCINDOLOL HYDROCHLORIDE [Concomitant]
  10. ROFECOXIB [Concomitant]
  11. SERTRALINE HYDROCHLORIDE [Concomitant]

REACTIONS (3)
  - BLOOD CHOLESTEROL INCREASED [None]
  - RASH PRURITIC [None]
  - URTICARIA [None]
